FAERS Safety Report 6341726-2 (Version None)
Quarter: 2009Q3

REPORT INFORMATION
  Report Type: 
  Country: None (occurrence: None)
  Receive Date: 20090902
  Receipt Date: 20090902
  Transmission Date: 20100115
  Serious: No
  Sender: FDA-Public Use
  Company Number: None

PATIENT
  Age: 21 Year
  Sex: Female
  Weight: 65.7716 kg

DRUGS (2)
  1. MIRENA [Suspect]
     Indication: CONTRACEPTION
     Dates: start: 20090204, end: 20090901
  2. MIRENA [Suspect]
     Indication: DYSMENORRHOEA
     Dates: start: 20090204, end: 20090901

REACTIONS (4)
  - DEVICE BREAKAGE [None]
  - ENDOMETRIAL DISORDER [None]
  - HAEMORRHAGE [None]
  - PAIN [None]
